FAERS Safety Report 16966532 (Version 1)
Quarter: 2019Q4

REPORT INFORMATION
  Report Type: Spontaneous
  Country: NZ (occurrence: NZ)
  Receive Date: 20191028
  Receipt Date: 20191028
  Transmission Date: 20200122
  Serious: Yes (Other)
  Sender: FDA-Public Use
  Company Number: NVSC2019NZ015454

PATIENT
  Age: 59 Year
  Sex: Female

DRUGS (2)
  1. ACLASTA [Suspect]
     Active Substance: ZOLEDRONIC ACID
     Indication: OSTEOPOROSIS
     Dosage: 5 MG
     Route: 042
  2. PREGABALIN. [Concomitant]
     Active Substance: PREGABALIN
     Indication: TRIGEMINAL NEURALGIA
     Dosage: UNK
     Route: 065

REACTIONS (8)
  - Swelling of eyelid [Unknown]
  - Idiopathic orbital inflammation [Recovering/Resolving]
  - Erythema of eyelid [Unknown]
  - Photosensitivity reaction [Unknown]
  - Eye pain [Unknown]
  - Headache [Unknown]
  - Diplopia [Unknown]
  - Eye movement disorder [Unknown]
